FAERS Safety Report 15394409 (Version 1)
Quarter: 2018Q3

REPORT INFORMATION
  Report Type: Spontaneous
  Country: PL (occurrence: PL)
  Receive Date: 20180918
  Receipt Date: 20180918
  Transmission Date: 20181010
  Serious: Yes (Other)
  Sender: FDA-Public Use
  Company Number: PL-SUN PHARMACEUTICAL INDUSTRIES LTD-2018RR-184387

PATIENT
  Age: 59 Year
  Sex: Female

DRUGS (3)
  1. PRASUGREL. [Suspect]
     Active Substance: PRASUGREL
     Indication: ANTIPLATELET THERAPY
     Dosage: UNK
     Route: 065
  2. ACETYLSALICYLIC ACID [Interacting]
     Active Substance: ASPIRIN
     Indication: ANTIPLATELET THERAPY
     Dosage: 75 MG
     Route: 065
  3. CLOPIDOGREL [Suspect]
     Active Substance: CLOPIDOGREL BISULFATE
     Indication: ANTIPLATELET THERAPY
     Dosage: 75 MG
     Route: 065

REACTIONS (2)
  - Drug interaction [Unknown]
  - Drug ineffective [Unknown]
